FAERS Safety Report 4293734-3 (Version None)
Quarter: 2004Q1

REPORT INFORMATION
  Report Type: 
  Country: None (occurrence: None)
  Receive Date: 20040126
  Receipt Date: 20031017
  Transmission Date: 20041129
  Serious: No
  Sender: FDA-Public Use
  Company Number: USA031050237

PATIENT
  Age: 80 Year
  Sex: Male
  Weight: 82 kg

DRUGS (3)
  1. FORTEO [Suspect]
     Indication: OSTEOPOROSIS
     Dates: start: 20030201
  2. CALCIUM [Concomitant]
  3. VITAMIN C [Concomitant]

REACTIONS (5)
  - ASTHENIA [None]
  - DYSURIA [None]
  - HYPERTENSION [None]
  - NOCTURIA [None]
  - POLLAKIURIA [None]
